FAERS Safety Report 4822353-2 (Version None)
Quarter: 2005Q4

REPORT INFORMATION
  Report Type: 
  Country: None (occurrence: None)
  Receive Date: 20051104
  Receipt Date: 20051024
  Transmission Date: 20060501
  Serious: Yes (Hospitalization)
  Sender: FDA-Public Use
  Company Number: B0398805A

PATIENT
  Age: 48 Year
  Sex: Male

DRUGS (5)
  1. ZIAGEN [Suspect]
     Indication: HIV INFECTION
     Dosage: 300 MG/TWICE PER DAY
  2. CIPROFRIBRATE (CIPROFIBRATE) [Suspect]
     Indication: DYSLIPIDAEMIA
     Dosage: 100 MG/PER DAY
     Dates: start: 20020201
  3. ZIDOVUDINE [Concomitant]
  4. LAMIVUDINE [Concomitant]
  5. TRIZIVIR [Concomitant]

REACTIONS (10)
  - CYTOLYTIC HEPATITIS [None]
  - DRUG TOXICITY [None]
  - HAEMODIALYSIS [None]
  - PYREXIA [None]
  - RASH GENERALISED [None]
  - RASH MACULO-PAPULAR [None]
  - RENAL FAILURE [None]
  - RHABDOMYOLYSIS [None]
  - TACHYCARDIA [None]
  - TACHYPNOEA [None]
